FAERS Safety Report 5421615-8 (Version None)
Quarter: 2007Q3

REPORT INFORMATION
  Report Type: 
  Country: None (occurrence: None)
  Receive Date: 20070821
  Receipt Date: 20070809
  Transmission Date: 20080115
  Serious: Yes (Death, Life-Threatening, Hospitalization, Other)
  Sender: FDA-Public Use
  Company Number: JP-PFIZER INC-2007056722

PATIENT
  Sex: Female

DRUGS (21)
  1. ZYVOX [Suspect]
     Indication: SPONDYLITIS
     Route: 042
     Dates: start: 20070326, end: 20070403
  2. ZYVOX [Suspect]
     Route: 042
     Dates: start: 20070423, end: 20070501
  3. ZYVOX [Suspect]
     Route: 042
     Dates: start: 20070518, end: 20070524
  4. ZYVOX [Suspect]
     Route: 042
     Dates: start: 20070626, end: 20070706
  5. ZYVOX [Suspect]
     Indication: SPONDYLITIS
     Route: 048
     Dates: start: 20070404, end: 20070413
  6. ZYVOX [Suspect]
     Route: 048
     Dates: start: 20070501, end: 20070510
  7. ZYVOX [Suspect]
     Route: 048
     Dates: start: 20070525, end: 20070625
  8. DIFLUCAN [Concomitant]
     Route: 048
  9. LANSOPRAZOLE [Concomitant]
     Route: 048
  10. PREDONINE [Concomitant]
     Route: 048
  11. LIPITOR [Concomitant]
     Route: 048
  12. BEZATOL - SLOW RELEASE [Concomitant]
     Route: 048
  13. FERROMIA [Concomitant]
     Route: 048
  14. URSO 250 [Concomitant]
     Route: 048
  15. MAGNESIUM OXIDE [Concomitant]
     Route: 048
  16. CALONAL [Concomitant]
     Route: 048
  17. VEEN D [Concomitant]
     Route: 042
  18. SOLDEM 3A [Concomitant]
     Route: 042
  19. FAMOTIDINE [Concomitant]
  20. HUMULIN 70/30 [Concomitant]
  21. PREDONINE [Concomitant]

REACTIONS (4)
  - ANAEMIA [None]
  - ANOREXIA [None]
  - GASTROINTESTINAL HAEMORRHAGE [None]
  - HYPONATRAEMIA [None]
